FAERS Safety Report 6255619-2 (Version None)
Quarter: 2009Q3

REPORT INFORMATION
  Report Type: 
  Country: None (occurrence: None)
  Receive Date: 20090701
  Receipt Date: 20090615
  Transmission Date: 20100115
  Serious: Yes (Hospitalization)
  Sender: FDA-Public Use
  Company Number: 2009S1010591

PATIENT
  Age: 32 Year
  Sex: Male

DRUGS (6)
  1. VERAPAMIL [Suspect]
     Indication: OVERDOSE
     Dosage: 13.44 GM
  2. BUPROPION HCL [Suspect]
     Indication: OVERDOSE
     Dosage: 4.8 GM; ONCE
  3. ZOLPIDEM [Suspect]
     Indication: OVERDOSE
     Dosage: 200 MG; ONCE
  4. QUETIAPINE FUMARATE [Suspect]
     Indication: OVERDOSE
  5. CLONAZEPAM [Suspect]
     Indication: OVERDOSE
     Dosage: 22 MG; ONCE
  6. BENAZEPRIL HYDROCHLORIDE [Suspect]
     Indication: OVERDOSE
     Dosage: 32 DF; ONCE

REACTIONS (13)
  - BLOOD CREATININE INCREASED [None]
  - BLOOD LACTIC ACID INCREASED [None]
  - CARBON DIOXIDE DECREASED [None]
  - CREPITATIONS [None]
  - DEPRESSED LEVEL OF CONSCIOUSNESS [None]
  - DRY SKIN [None]
  - GASTROINTESTINAL SOUNDS ABNORMAL [None]
  - INCOHERENT [None]
  - MULTIPLE DRUG OVERDOSE INTENTIONAL [None]
  - NODAL ARRHYTHMIA [None]
  - PERIPHERAL COLDNESS [None]
  - PUPILLARY REFLEX IMPAIRED [None]
  - SHOCK [None]
